FAERS Safety Report 16764982 (Version 3)
Quarter: 2019Q3

REPORT INFORMATION
  Report Type: Report from Study
  Country: US (occurrence: IT)
  Receive Date: 20190903
  Receipt Date: 20190923
  Transmission Date: 20191005
  Serious: Yes (Hospitalization, Other)
  Sender: FDA-Public Use
  Company Number: US-AUROBINDO-AUR-APL-2019-057396

PATIENT
  Age: 34 Year
  Sex: Male

DRUGS (3)
  1. DIAZEPAM. [Suspect]
     Active Substance: DIAZEPAM
     Indication: PRODUCT USED FOR UNKNOWN INDICATION
     Dosage: 50 MILLIGRAM, DAILY
     Route: 065
  2. LORMETAZEPAM [Suspect]
     Active Substance: LORMETAZEPAM
     Indication: PRODUCT USED FOR UNKNOWN INDICATION
     Dosage: 30 MILLIGRAM, DAILY
     Route: 065
  3. ZOLPIDEM [Suspect]
     Active Substance: ZOLPIDEM TARTRATE
     Indication: PRODUCT USED FOR UNKNOWN INDICATION
     Dosage: 300 MILLIGRAM, DAILY,(DIAZEPAM-EQUIVALENTS DOSE: 125 MG)
     Route: 065

REACTIONS (10)
  - Drug abuse [Unknown]
  - Aspartate aminotransferase increased [Unknown]
  - Transaminases increased [Unknown]
  - Drug dependence [Unknown]
  - Alanine aminotransferase increased [Unknown]
  - Intentional overdose [Unknown]
  - Gamma-glutamyltransferase increased [Unknown]
  - Labelled drug-drug interaction medication error [Unknown]
  - Hypertransaminasaemia [Unknown]
  - Overdose [Unknown]
